FAERS Safety Report 4768454-9 (Version None)
Quarter: 2005Q3

REPORT INFORMATION
  Report Type: 
  Country: None (occurrence: None)
  Receive Date: 20050914
  Receipt Date: 20050906
  Transmission Date: 20060218
  Serious: Yes (Other)
  Sender: FDA-Public Use
  Company Number: PHBS2005BE13297

PATIENT
  Age: 30 Year
  Sex: Female

DRUGS (1)
  1. ELIDEL [Suspect]
     Route: 061

REACTIONS (3)
  - FOLLICULAR MUCINOSIS [None]
  - RASH PAPULAR [None]
  - SKIN INFLAMMATION [None]
